FAERS Safety Report 11552852 (Version 1)
Quarter: 2015Q3

REPORT INFORMATION
  Report Type: Report from Study
  Country: BG (occurrence: BG)
  Receive Date: 20150925
  Receipt Date: 20150925
  Transmission Date: 20151125
  Serious: Yes (Hospitalization, Other)
  Sender: FDA-Public Use
  Company Number: BG-ASTRAZENECA-2015SE90628

PATIENT
  Age: 23998 Day
  Sex: Male

DRUGS (5)
  1. BRILINTA [Suspect]
     Active Substance: TICAGRELOR
     Indication: ACUTE CORONARY SYNDROME
     Route: 048
     Dates: start: 20150603
  2. ROSUVASTATIN [Concomitant]
     Active Substance: ROSUVASTATIN
     Indication: DYSLIPIDAEMIA
     Dates: start: 201102
  3. CANDESARTAN [Concomitant]
     Active Substance: CANDESARTAN
     Indication: HYPERTENSION
     Dates: start: 20150513
  4. ACETYLSALICYLIC ACID [Suspect]
     Active Substance: ASPIRIN
     Indication: ACUTE CORONARY SYNDROME
     Dosage: NON-AZ PRODUCT
     Route: 048
     Dates: start: 201102, end: 20150705
  5. BISOPROLOL [Concomitant]
     Active Substance: BISOPROLOL
     Indication: MYOCARDIAL ISCHAEMIA
     Dates: start: 201504

REACTIONS (1)
  - Peptic ulcer [Recovered/Resolved]

NARRATIVE: CASE EVENT DATE: 20150904
